FAERS Safety Report 10592679 (Version 1)
Quarter: 2014Q4

REPORT INFORMATION
  Report Type: Spontaneous
  Country: US (occurrence: None)
  Receive Date: 20141117
  Receipt Date: 20141117
  Transmission Date: 20150529
  Serious: Yes (Other)
  Sender: FDA-Public Use
  Company Number: HA14-405-AE

PATIENT
  Age: 63 Year
  Sex: Female

DRUGS (3)
  1. NAPROXEN TABLETS, USP 500 MG (AMNEAL) [Suspect]
     Active Substance: NAPROXEN
     Indication: MUSCULOSKELETAL PAIN
     Route: 048
     Dates: start: 20141026
  2. NAPROXEN TABLETS, USP 500 MG (AMNEAL) [Suspect]
     Active Substance: NAPROXEN
     Indication: PAIN
     Route: 048
     Dates: start: 20141026
  3. GEMFIBROZIL (LOPID) [Concomitant]

REACTIONS (7)
  - Blister [None]
  - Mouth swelling [None]
  - Peripheral swelling [None]
  - Skin exfoliation [None]
  - Pain of skin [None]
  - Erythema [None]
  - Lip swelling [None]

NARRATIVE: CASE EVENT DATE: 20141027
